FAERS Safety Report 9411162 (Version 2)
Quarter: 2013Q3

REPORT INFORMATION
  Report Type: Report from Study
  Country: AR (occurrence: AR)
  Receive Date: 20130721
  Receipt Date: 20130722
  Transmission Date: 20140515
  Serious: Yes (Hospitalization)
  Sender: FDA-Public Use
  Company Number: PHHY2013AR076958

PATIENT
  Sex: Female

DRUGS (2)
  1. DIOVAN [Suspect]
     Indication: HYPERTENSION
     Dosage: 80 MG, ONE TABLET DAILY
     Route: 048
  2. DIOVAN [Suspect]
     Dosage: 2 DF (80MG) DAILY

REACTIONS (4)
  - Syncope [Recovered/Resolved]
  - Nervousness [Recovered/Resolved]
  - Blood pressure increased [Recovered/Resolved]
  - Incorrect dose administered [Unknown]
